FAERS Safety Report 19378192 (Version 5)
Quarter: 2023Q4

REPORT INFORMATION
  Report Type: Report from Study
  Country: FR (occurrence: FR)
  Receive Date: 20210605
  Receipt Date: 20231115
  Transmission Date: 20240110
  Serious: Yes (Other)
  Sender: FDA-Public Use
  Company Number: FR-SHIRE-FR202026098

PATIENT
  Age: 67 Year
  Sex: Female

DRUGS (12)
  1. TEDUGLUTIDE [Suspect]
     Active Substance: TEDUGLUTIDE
     Indication: Short-bowel syndrome
     Dosage: 3.59 MILLIGRAM, QD
     Route: 042
     Dates: start: 20190430, end: 20210722
  2. TEDUGLUTIDE [Suspect]
     Active Substance: TEDUGLUTIDE
     Indication: Short-bowel syndrome
     Dosage: 3.59 MILLIGRAM, QD
     Route: 042
     Dates: start: 20190430, end: 20210722
  3. TEDUGLUTIDE [Suspect]
     Active Substance: TEDUGLUTIDE
     Indication: Short-bowel syndrome
     Dosage: 3.59 MILLIGRAM, QD
     Route: 042
     Dates: start: 20190430, end: 20210722
  4. TEDUGLUTIDE [Suspect]
     Active Substance: TEDUGLUTIDE
     Indication: Short-bowel syndrome
     Dosage: 3.59 MILLIGRAM, QD
     Route: 042
     Dates: start: 20190430, end: 20210722
  5. SELENIUM [Concomitant]
     Active Substance: SELENIUM
     Indication: Selenium deficiency
     Dosage: 1 DOSAGE FORM, BID
     Route: 048
     Dates: start: 20191114, end: 20191214
  6. VITAMIN C [Concomitant]
     Active Substance: ASCORBIC ACID
     Indication: Vitamin C deficiency
     Dosage: 500 MILLIGRAM, BID
     Route: 048
     Dates: start: 20191114, end: 20191214
  7. PHLOROGLUCINOL\1,3,5-TRIMETHOXYBENZENE [Concomitant]
     Active Substance: PHLOROGLUCINOL\1,3,5-TRIMETHOXYBENZENE
     Indication: Prophylaxis
     Dosage: 1 DOSAGE FORM, TID
     Route: 048
     Dates: start: 20191029
  8. MAGNESIUM CARBONATE [Concomitant]
     Active Substance: MAGNESIUM CARBONATE
     Indication: Prophylaxis
     Dosage: 100 MILLIGRAM, QD
     Route: 048
     Dates: start: 20191029
  9. CARBIMAZOLE [Concomitant]
     Active Substance: CARBIMAZOLE
     Indication: Hyperthyroidism
     Dosage: 20 MILLIGRAM, QD
     Route: 048
     Dates: start: 20210723, end: 20211103
  10. CARBIMAZOLE [Concomitant]
     Active Substance: CARBIMAZOLE
     Dosage: 30 MILLIGRAM, QD
     Route: 048
     Dates: start: 20211104
  11. VITAMIN D [Concomitant]
     Active Substance: VITAMIN D NOS
     Indication: Vitamin D deficiency
     Dosage: 80000 INTERNATIONAL UNIT, MONTHLY
     Route: 048
     Dates: start: 20211026
  12. PHLOROGLUCINOL [Concomitant]
     Active Substance: PHLOROGLUCINOL
     Indication: Abdominal pain
     Dosage: UNK
     Route: 048
     Dates: start: 20211026

REACTIONS (4)
  - Hyperthyroidism [Recovered/Resolved with Sequelae]
  - Portal hypertension [Not Recovered/Not Resolved]
  - Pulmonary hypertension [Not Recovered/Not Resolved]
  - Brunner^s gland hyperplasia [Not Recovered/Not Resolved]

NARRATIVE: CASE EVENT DATE: 20200611
